FAERS Safety Report 7186969 (Version 6)
Quarter: 2013Q3

REPORT INFORMATION
  Report Type: Spontaneous
  Country: US (occurrence: US)
  Receive Date: 20091124
  Receipt Date: 20130813
  Transmission Date: 20140515
  Serious: Yes (Life-Threatening, Hospitalization)
  Sender: FDA-Public Use
  Company Number: US-BAYER-200939468NA

PATIENT
  Age: 18 Year
  Sex: Female
  Weight: 49.54 kg

DRUGS (13)
  1. YAZ [Suspect]
     Indication: ACNE
     Route: 048
     Dates: start: 20070829, end: 20071104
  2. YAZ [Suspect]
     Indication: PREMENSTRUAL DYSPHORIC DISORDER
  3. YAZ [Suspect]
     Indication: PREMENSTRUAL SYNDROME
  4. YASMIN [Suspect]
     Indication: ACNE
     Route: 048
     Dates: start: 20070829, end: 20071104
  5. YASMIN [Suspect]
     Indication: PREMENSTRUAL DYSPHORIC DISORDER
  6. YASMIN [Suspect]
     Indication: PREMENSTRUAL SYNDROME
  7. EFFEXOR XR [Concomitant]
     Indication: DEPRESSED MOOD
     Dosage: 75 MG, BID
     Route: 065
     Dates: start: 2001
  8. CLONIDINE [Concomitant]
     Indication: ANXIETY
     Dosage: 0.1 MG, QD IN THE MORNING
     Route: 065
     Dates: start: 2003
  9. CLONIDINE [Concomitant]
     Indication: ANXIETY
     Dosage: 0.05 MG, QD AT NIGHT
  10. ADVIL [Concomitant]
     Dosage: UNK UNK, PRN
     Route: 065
  11. ATEROL [Concomitant]
     Route: 065
     Dates: start: 1991, end: 20070615
  12. ADDERALL [Concomitant]
     Dosage: 30 MG, BID (MORNING / EVENING)
  13. MENINGOCOCCAL POLYSACCHARIDE [Concomitant]

REACTIONS (1)
  - Deep vein thrombosis [Unknown]
